FAERS Safety Report 9494817 (Version 1)
Quarter: 2013Q3

REPORT INFORMATION
  Report Type: Spontaneous
  Country: US (occurrence: None)
  Receive Date: 20130830
  Receipt Date: 20130830
  Transmission Date: 20140515
  Serious: No
  Sender: FDA-Public Use
  Company Number: None

PATIENT
  Age: 17 Year
  Sex: Male

DRUGS (4)
  1. OMNIPAQUE [Suspect]
     Indication: ABDOMINAL PAIN
     Dosage: 3 CC/S; RT A/C
     Route: 042
     Dates: start: 20130815
  2. OMNIPAQUE [Suspect]
     Indication: DIARRHOEA
     Dosage: 3 CC/S; RT A/C
     Route: 042
     Dates: start: 20130815
  3. OMNIPAQUE [Suspect]
     Indication: MUSCLE SPASMS
     Dosage: 3 CC/S; RT A/C
     Route: 042
     Dates: start: 20130815
  4. OMNIPAQUE [Suspect]
     Indication: COMPUTERISED TOMOGRAM ABDOMEN
     Dosage: 3 CC/S; RT A/C
     Route: 042
     Dates: start: 20130815

REACTIONS (5)
  - Infusion site pain [None]
  - Infusion site hypoaesthesia [None]
  - Infusion site discolouration [None]
  - Infusion site erythema [None]
  - Infusion site swelling [None]
